FAERS Safety Report 12287043 (Version 1)
Quarter: 2016Q2

REPORT INFORMATION
  Report Type: Spontaneous
  Country: JP (occurrence: JP)
  Receive Date: 20160420
  Receipt Date: 20160420
  Transmission Date: 20160815
  Serious: Yes (Hospitalization, Other)
  Sender: FDA-Public Use
  Company Number: JP-GILEAD-2016-0208738AA

PATIENT
  Age: 61 Year
  Sex: Male
  Weight: 55 kg

DRUGS (5)
  1. HARVONI [Suspect]
     Active Substance: LEDIPASVIR\SOFOSBUVIR
     Indication: PRODUCT USED FOR UNKNOWN INDICATION
     Dosage: UNK
     Route: 065
  2. HUMALOG MIX [Concomitant]
     Active Substance: INSULIN LISPRO
     Dosage: 50 MG, UNK
     Route: 058
  3. GLACTIV [Concomitant]
     Active Substance: SITAGLIPTIN
     Dosage: 2 DF, UNK
  4. SEIBULE [Concomitant]
     Active Substance: MIGLITOL
     Dosage: 3 DF, UNK
  5. GLIMEPIRIDE. [Concomitant]
     Active Substance: GLIMEPIRIDE
     Dosage: 1.5 DF, UNK

REACTIONS (1)
  - Cerebral haemorrhage [Recovered/Resolved with Sequelae]

NARRATIVE: CASE EVENT DATE: 20160323
